FAERS Safety Report 10899184 (Version 1)
Quarter: 2015Q1

REPORT INFORMATION
  Report Type: Spontaneous
  Country: PL (occurrence: PL)
  Receive Date: 20150309
  Receipt Date: 20150309
  Transmission Date: 20150721
  Serious: Yes (Hospitalization)
  Sender: FDA-Public Use
  Company Number: PL-TEVA-545417ISR

PATIENT
  Age: 33 Year
  Sex: Female

DRUGS (1)
  1. ZAMUR 500 [Suspect]
     Active Substance: CEFUROXIME AXETIL
     Indication: INFECTION
     Route: 048
     Dates: start: 20150301, end: 20150301

REACTIONS (6)
  - Swelling [Recovered/Resolved]
  - Pruritus [Recovered/Resolved]
  - Loss of consciousness [Recovered/Resolved]
  - Dyspnoea [Recovered/Resolved]
  - Anaphylactic shock [Recovered/Resolved]
  - Ear haemorrhage [Recovered/Resolved]

NARRATIVE: CASE EVENT DATE: 20150301
